FAERS Safety Report 8407400-3 (Version None)
Quarter: 2012Q2

REPORT INFORMATION
  Report Type: 
  Country: None (occurrence: None)
  Receive Date: 20120604
  Receipt Date: 20120525
  Transmission Date: 20120825
  Serious: Yes (Other)
  Sender: FDA-Public Use
  Company Number: BR-ASTRAZENECA-2012SE34973

PATIENT
  Age: 66 Year
  Sex: Male
  Weight: 73 kg

DRUGS (7)
  1. ATENOLOL [Suspect]
     Indication: HYPERTENSION
     Route: 048
  2. BRILINTA [Suspect]
     Indication: GASTROINTESTINAL HAEMORRHAGE
     Route: 048
     Dates: start: 20120501
  3. DIOVAN [Concomitant]
     Indication: HYPERTENSION
     Route: 048
  4. METFORMIN HYDROCHLORIDE [Concomitant]
     Indication: DIABETES MELLITUS
     Route: 048
  5. CRESTOR [Suspect]
     Route: 048
  6. ASPIRIN [Concomitant]
     Indication: HYPERTENSION
     Route: 048
  7. ECOTEX [Concomitant]
     Route: 048

REACTIONS (4)
  - INTENTIONAL DRUG MISUSE [None]
  - OFF LABEL USE [None]
  - GASTROINTESTINAL HAEMORRHAGE [None]
  - GASTROOESOPHAGEAL REFLUX DISEASE [None]
